FAERS Safety Report 5787316-1 (Version None)
Quarter: 2008Q2

REPORT INFORMATION
  Report Type: 
  Country: None (occurrence: None)
  Receive Date: 20080623
  Receipt Date: 20080623
  Transmission Date: 20081010
  Serious: Yes (Other)
  Sender: FDA-Public Use
  Company Number: None

PATIENT
  Age: 77 Year
  Sex: Male
  Weight: 92.9874 kg

DRUGS (18)
  1. WARFARIN SODIUM [Suspect]
     Indication: THROMBOSIS PROPHYLAXIS
     Dosage: 2.5 DAILY PO
     Route: 048
     Dates: start: 20070928, end: 20070930
  2. ACETAMINOPHEN AND HYDROCODONE BITARTRATE [Concomitant]
  3. MOM [Concomitant]
  4. ASCORBIC ACID [Concomitant]
  5. FERROUS GLUCONATE [Concomitant]
  6. FAMOTADINE [Concomitant]
  7. DOCUSATE SODIUM [Concomitant]
  8. DILTIAZEM [Concomitant]
  9. GLIPIZIDE [Concomitant]
  10. SIMVASTATIN [Concomitant]
  11. LISINOPRIL [Concomitant]
  12. HYDROCHLOROTHIAZIDE [Concomitant]
  13. PREDNISONE 50MG TAB [Concomitant]
  14. COMBIVENT [Concomitant]
  15. ASMANEX TWISTHALER [Concomitant]
  16. NASALIDE [Concomitant]
  17. CEFAZOLIN [Concomitant]
  18. GENTAMICIN [Concomitant]

REACTIONS (3)
  - BLISTER [None]
  - ECCHYMOSIS [None]
  - OEDEMA PERIPHERAL [None]
